FAERS Safety Report 10566608 (Version 1)
Quarter: 2014Q4

REPORT INFORMATION
  Report Type: Spontaneous
  Country: BR (occurrence: BR)
  Receive Date: 20141105
  Receipt Date: 20141105
  Transmission Date: 20150529
  Serious: Yes (Life-Threatening, Hospitalization, Other)
  Sender: FDA-Public Use
  Company Number: BR-PFIZER INC-2014305256

PATIENT
  Sex: Male
  Weight: 96 kg

DRUGS (9)
  1. INSULIN [Suspect]
     Active Substance: INSULIN NOS
     Dosage: 35 U (20 U IN THE MORNING AND 15 U AT NIGHT) DAILY
  2. ASPIRINA PREVENT [Suspect]
     Active Substance: ASPIRIN
     Dosage: UNK
  3. ADALAT [Suspect]
     Active Substance: NIFEDIPINE
     Indication: PAIN
     Dosage: 1 DF (60 MG), UNK
  4. PANTOPRAZOLE [Suspect]
     Active Substance: PANTOPRAZOLE SODIUM
     Indication: GASTRIC DISORDER
     Dosage: 1 UNK, DAILY
  5. METFORMIN HCL [Suspect]
     Active Substance: METFORMIN HYDROCHLORIDE
     Indication: DIABETES MELLITUS
     Dosage: 1 DF (850 MG), 3X/DAY
  6. CITALOR [Suspect]
     Active Substance: ATORVASTATIN
     Indication: BLOOD CHOLESTEROL INCREASED
     Dosage: 25 MG, UNK
  7. DIOVAN HCT [Suspect]
     Active Substance: HYDROCHLOROTHIAZIDE\VALSARTAN
     Indication: HYPERTENSION
     Dosage: 1 DF (25/320 MG), DAILY
     Route: 048
     Dates: start: 2008, end: 20140512
  8. ONGLYZA [Suspect]
     Active Substance: SAXAGLIPTIN HYDROCHLORIDE
     Dosage: 5 MG, UNK
  9. ALDACTONE [Suspect]
     Active Substance: SPIRONOLACTONE
     Dosage: 1 DF (25 MG), DAILY  (AT LUNCH)
     Route: 048
     Dates: end: 201405

REACTIONS (8)
  - Diabetes mellitus [Unknown]
  - Speech disorder [Recovered/Resolved]
  - Poor peripheral circulation [Unknown]
  - Obesity [Unknown]
  - Memory impairment [Unknown]
  - Pneumonia [Unknown]
  - Ischaemia [Unknown]
  - Carotid artery stenosis [Unknown]
